FAERS Safety Report 5893031-6 (Version None)
Quarter: 2008Q3

REPORT INFORMATION
  Report Type: 
  Country: None (occurrence: None)
  Receive Date: 20080923
  Receipt Date: 20070702
  Transmission Date: 20090109
  Serious: No
  Sender: FDA-Public Use
  Company Number: US-ASTRAZENECA-2007UW01956

PATIENT
  Age: 14526 Day
  Sex: Male
  Weight: 113.6 kg

DRUGS (5)
  1. SEROQUEL [Suspect]
     Indication: SLEEP DISORDER
     Route: 048
     Dates: start: 20040615, end: 20051005
  2. SEROQUEL [Suspect]
     Route: 048
     Dates: start: 20040519, end: 20040526
  3. WELLBUTRIN [Concomitant]
  4. PAXIL [Concomitant]
  5. DEPAKOTE ER [Concomitant]

REACTIONS (6)
  - BACK PAIN [None]
  - GASTROENTERITIS [None]
  - HYPONATRAEMIA [None]
  - NAUSEA [None]
  - SLEEP APNOEA SYNDROME [None]
  - TYPE 2 DIABETES MELLITUS [None]
